FAERS Safety Report 11140649 (Version 1)
Quarter: 2015Q2

REPORT INFORMATION
  Report Type: Spontaneous
  Country: US (occurrence: US)
  Receive Date: 20150527
  Receipt Date: 20150527
  Transmission Date: 20150821
  Serious: No
  Sender: FDA-Public Use
  Company Number: US-MALLINCKRODT-QSC-2014-0715

PATIENT
  Sex: Male

DRUGS (5)
  1. LOSARTAN [Concomitant]
     Active Substance: LOSARTAN
     Dosage: UNK
  2. H.P. ACTHAR [Suspect]
     Active Substance: CORTICOTROPIN
     Indication: FOCAL SEGMENTAL GLOMERULOSCLEROSIS
     Dosage: 40 UNITS, BIW
     Dates: start: 20130728, end: 201402
  3. H.P. ACTHAR [Suspect]
     Active Substance: CORTICOTROPIN
     Dosage: 30 UNITS, BIW
     Dates: start: 201402
  4. LISINOPRIL. [Concomitant]
     Active Substance: LISINOPRIL
     Dosage: UNK
  5. AMLODIPINE [Concomitant]
     Active Substance: AMLODIPINE BESYLATE
     Dosage: UNK

REACTIONS (9)
  - Skin hyperpigmentation [Recovered/Resolved]
  - Blood glucose increased [Recovered/Resolved]
  - Acne [Recovered/Resolved]
  - Increased appetite [Recovered/Resolved]
  - Weight increased [Recovering/Resolving]
  - Tooth discolouration [Recovered/Resolved]
  - Glycosylated haemoglobin increased [Recovered/Resolved]
  - Hypertension [Recovered/Resolved]
  - Hirsutism [Recovered/Resolved]

NARRATIVE: CASE EVENT DATE: 2013
